FAERS Safety Report 17336164 (Version 1)
Quarter: 2020Q1

REPORT INFORMATION
  Report Type: Spontaneous
  Country: NL (occurrence: NL)
  Receive Date: 20200128
  Receipt Date: 20200128
  Transmission Date: 20200409
  Serious: Yes (Hospitalization)
  Sender: FDA-Public Use
  Company Number: NL-MYLANLABS-2020M1009228

PATIENT
  Age: 63 Year
  Sex: Female
  Weight: 68 kg

DRUGS (2)
  1. AZATHIOPRINE. [Suspect]
     Active Substance: AZATHIOPRINE
     Indication: CROHN^S DISEASE
     Dosage: 1XPER DAG 1 TABLET
     Route: 048
     Dates: start: 20190912, end: 20190929
  2. PREDNISON [Concomitant]
     Active Substance: PREDNISONE
     Dosage: 15 MG PER DAG

REACTIONS (3)
  - Eye inflammation [Recovered/Resolved]
  - Pyrexia [Recovered/Resolved]
  - Urticaria [Recovered/Resolved]

NARRATIVE: CASE EVENT DATE: 20190927
